FAERS Safety Report 7437095-7 (Version None)
Quarter: 2011Q2

REPORT INFORMATION
  Report Type: 
  Country: None (occurrence: None)
  Receive Date: 20110421
  Receipt Date: 20110421
  Transmission Date: 20111010
  Serious: Yes (Hospitalization)
  Sender: FDA-Public Use
  Company Number: None

PATIENT
  Sex: Male
  Weight: 61.4 kg

DRUGS (12)
  1. PREDNISONE [Concomitant]
     Dosage: 535 MG
  2. VINCRISTINE SULFATE [Suspect]
     Dosage: 2.84 MG
  3. ZOFRAN [Concomitant]
  4. COMPAZINE [Concomitant]
  5. SURFAK [Concomitant]
  6. ETOPOSIDE [Suspect]
     Dosage: 360 MG
  7. RITUXAN [Suspect]
     Dosage: 670 MG
  8. LORAZEPAM [Concomitant]
  9. CYCLOPHOSPHAMIDE [Suspect]
     Dosage: 1340 MG
  10. FILGRASTIM [Concomitant]
  11. DOXORUBICIN HCL [Suspect]
     Dosage: 72 MG
  12. ALLOPURINOL [Concomitant]

REACTIONS (1)
  - FEBRILE NEUTROPENIA [None]
